FAERS Safety Report 6401588-1 (Version None)
Quarter: 2009Q4

REPORT INFORMATION
  Report Type: 
  Country: None (occurrence: None)
  Receive Date: 20091009
  Receipt Date: 20091009
  Transmission Date: 20100525
  Serious: Yes (Life-Threatening)
  Sender: FDA-Public Use
  Company Number: None

PATIENT
  Age: 64 Year
  Sex: Female
  Weight: 77.1115 kg

DRUGS (2)
  1. CYMBALTA [Suspect]
     Indication: DEPRESSION
     Dosage: 20MGS UP TO 60 MGS ONCE DAILY PO
     Route: 048
     Dates: start: 20090301, end: 20091008
  2. CYMBALTA [Suspect]
     Indication: PAIN
     Dosage: 20MGS UP TO 60 MGS ONCE DAILY PO
     Route: 048
     Dates: start: 20090301, end: 20091008

REACTIONS (7)
  - ANHEDONIA [None]
  - CONDITION AGGRAVATED [None]
  - DEPRESSION [None]
  - DRUG WITHDRAWAL SYNDROME [None]
  - PAIN [None]
  - PERSONALITY DISORDER [None]
  - SUICIDAL IDEATION [None]
